FAERS Safety Report 6723948-1 (Version None)
Quarter: 2010Q2

REPORT INFORMATION
  Report Type: 
  Country: None (occurrence: None)
  Receive Date: 20100513
  Receipt Date: 20091029
  Transmission Date: 20101027
  Serious: Yes (Disabling)
  Sender: FDA-Public Use
  Company Number: PHHY2009IT47168

PATIENT
  Age: 70 Year
  Sex: Male

DRUGS (5)
  1. ZOMETA [Suspect]
     Indication: MULTIPLE MYELOMA
     Dosage: 4 MG CYCLIC
     Dates: start: 20030101
  2. FUROSEMIDE [Concomitant]
     Dosage: 25 MG, UNK
     Route: 048
  3. SPIRONOLACTONE [Concomitant]
     Dosage: 25 MG, UNK
     Route: 048
  4. PARACETAMOL [Concomitant]
     Dosage: 500 MG, UNK
     Route: 048
  5. PANTOPRAZOLE SODIUM [Concomitant]
     Dosage: 20 MG, UNK
     Route: 048

REACTIONS (4)
  - GINGIVAL ULCERATION [None]
  - OSTEONECROSIS OF JAW [None]
  - PURULENT DISCHARGE [None]
  - SURGERY [None]
